FAERS Safety Report 5709186-X (Version None)
Quarter: 2008Q2

REPORT INFORMATION
  Report Type: 
  Country: None (occurrence: None)
  Receive Date: 20080418
  Receipt Date: 20080409
  Transmission Date: 20081010
  Serious: Yes (Other)
  Sender: FDA-Public Use
  Company Number: US-PURDUE-USA_2008_0032348

PATIENT
  Age: 52 Year
  Sex: Female
  Weight: 59 kg

DRUGS (3)
  1. OXYCODONE HCL [Suspect]
     Indication: PAIN
     Dosage: UNK MG, SEE TEXT
     Route: 048
     Dates: start: 20051018
  2. ACTIQ [Suspect]
     Indication: PAIN
     Dosage: 1600 MEQ, SEE TEXT
     Route: 002
  3. DILAUDID TABLET [Concomitant]
     Dosage: UNK, UNK
     Dates: end: 20060223

REACTIONS (7)
  - CONSTIPATION [None]
  - DENTAL CARIES [None]
  - DEPRESSED MOOD [None]
  - DIPLOPIA [None]
  - DRY MOUTH [None]
  - INSOMNIA [None]
  - VISION BLURRED [None]
